FAERS Safety Report 6869401-6 (Version None)
Quarter: 2010Q3

REPORT INFORMATION
  Report Type: 
  Country: None (occurrence: None)
  Receive Date: 20100722
  Receipt Date: 20080728
  Transmission Date: 20110219
  Serious: No
  Sender: FDA-Public Use
  Company Number: US-PFIZER INC-2008064644

PATIENT
  Sex: Female
  Weight: 54.43 kg

DRUGS (8)
  1. CHANTIX [Suspect]
     Indication: SMOKING CESSATION THERAPY
     Dates: start: 20080501, end: 20080501
  2. BENICAR [Concomitant]
     Indication: BLOOD PRESSURE
  3. IMDUR [Concomitant]
     Indication: MYOCARDIAL INFARCTION
  4. ZOCOR [Concomitant]
     Indication: MYOCARDIAL INFARCTION
  5. SPIRIVA [Concomitant]
     Indication: RESPIRATORY DISORDER
  6. NEXIUM [Concomitant]
     Indication: ANGINA PECTORIS
  7. ACETYLSALICYLIC ACID [Concomitant]
     Indication: ANGINA PECTORIS
  8. CHONDROITIN/GLUCOSAMINE [Concomitant]
     Indication: OSTEOPOROSIS PROPHYLAXIS

REACTIONS (5)
  - ABNORMAL DREAMS [None]
  - NIGHTMARE [None]
  - RASH [None]
  - STRESS [None]
  - WEIGHT INCREASED [None]
